FAERS Safety Report 8471895-X (Version None)
Quarter: 2012Q2

REPORT INFORMATION
  Report Type: 
  Country: None (occurrence: None)
  Receive Date: 20120627
  Receipt Date: 20120619
  Transmission Date: 20120825
  Serious: Yes (Other)
  Sender: FDA-Public Use
  Company Number: US-JNJFOC-20120609996

PATIENT

DRUGS (5)
  1. VINORELBINE [Suspect]
     Indication: DIFFUSE LARGE B-CELL LYMPHOMA
     Dosage: ADMINISTERED ON DAY 1 AND DAY 8 OF EVERY 21 DAY CYCLE
     Route: 065
  2. DOXORUBICIN HYDROCHLORIDE [Suspect]
     Indication: DIFFUSE LARGE B-CELL LYMPHOMA
     Dosage: ADMINISTERED ON DAY 1 AND DAY 8 OF EVERY 21 DAY CYCLE
     Route: 042
  3. RITUXIMAB [Suspect]
     Indication: DIFFUSE LARGE B-CELL LYMPHOMA
     Dosage: ADMINISTERED ON DAY 1 AND DAY 8 OF EVERY 21 DAY CYCLE
     Route: 065
  4. GEMCITABINE [Suspect]
     Indication: DIFFUSE LARGE B-CELL LYMPHOMA
     Dosage: ADMINISTERED ON DAY 1 AND DAY 8 OF EVERY 21 DAY CYCLE
     Route: 065
  5. COLONY STIMULATING FACTOR [Suspect]
     Indication: DIFFUSE LARGE B-CELL LYMPHOMA
     Dosage: ON DAY 9 OF EACH CYCLE
     Route: 065

REACTIONS (5)
  - ANAEMIA [None]
  - INFECTION [None]
  - THROMBOCYTOPENIA [None]
  - NEUTROPENIA [None]
  - RESPIRATORY FAILURE [None]
